FAERS Safety Report 7543962-6 (Version None)
Quarter: 2011Q2

REPORT INFORMATION
  Report Type: 
  Country: None (occurrence: None)
  Receive Date: 20110613
  Receipt Date: 20050421
  Transmission Date: 20111010
  Serious: Yes (Death, Other)
  Sender: FDA-Public Use
  Company Number: PHFR2005IE01112

PATIENT
  Sex: Male

DRUGS (3)
  1. AMISULPRIDE [Concomitant]
     Dosage: 200 MG, QD
     Route: 065
  2. CLOZAPINE [Suspect]
     Indication: SCHIZOPHRENIA
     Route: 048
     Dates: start: 20050210
  3. ABILIFY [Concomitant]
     Dosage: 10 MG, QD
     Route: 065

REACTIONS (4)
  - RESPIRATORY TRACT INFECTION [None]
  - CARDIAC ARREST [None]
  - ARRHYTHMIA [None]
  - CARDIOMYOPATHY [None]
